FAERS Safety Report 4330259-0 (Version None)
Quarter: 2004Q1

REPORT INFORMATION
  Report Type: 
  Country: None (occurrence: None)
  Receive Date: 20040329
  Receipt Date: 20040311
  Transmission Date: 20041129
  Serious: Yes (Hospitalization)
  Sender: FDA-Public Use
  Company Number: 190366

PATIENT
  Age: 30 Year
  Sex: Female
  Weight: 65 kg

DRUGS (3)
  1. AVONEX [Suspect]
     Indication: MULTIPLE SCLEROSIS
     Dosage: 30 MCG QW IM
     Route: 030
     Dates: start: 20010114
  2. PLACEBO [Concomitant]
  3. NORETHINDRONE ACETATE AND ETHINYL ESTRADIOL [Concomitant]

REACTIONS (3)
  - FASCIITIS [None]
  - INJECTION SITE ABSCESS [None]
  - INJECTION SITE REACTION [None]
